FAERS Safety Report 9142220 (Version 2)
Quarter: 2013Q1

REPORT INFORMATION
  Report Type: Spontaneous
  Country: CA (occurrence: CA)
  Receive Date: 20130305
  Receipt Date: 20130328
  Transmission Date: 20140127
  Serious: Yes (Other)
  Sender: FDA-Public Use
  Company Number: CA-AMGEN-CANSP2013014910

PATIENT
  Age: 56 Year
  Sex: Female

DRUGS (9)
  1. ENBREL [Suspect]
     Indication: PSORIATIC ARTHROPATHY
     Dosage: UNK
     Dates: start: 20121213, end: 20130308
  2. GABAPENTIN [Concomitant]
     Dosage: UNK
  3. BACLOFEN [Concomitant]
     Dosage: UNK
  4. SULFASALAZINE [Concomitant]
     Dosage: UNK
  5. PREDNISONE [Concomitant]
     Dosage: UNK
  6. RAMIPRIL [Concomitant]
     Dosage: UNK
  7. HYDROCHLOROTHIAZIDE [Concomitant]
     Dosage: UNK
  8. CIPRALEX [Concomitant]
     Dosage: UNK
  9. RANITIDINE [Concomitant]
     Dosage: UNK

REACTIONS (6)
  - Nervous system disorder [Not Recovered/Not Resolved]
  - Muscle spasms [Not Recovered/Not Resolved]
  - Mobility decreased [Not Recovered/Not Resolved]
  - Dry skin [Unknown]
  - Skin exfoliation [Unknown]
  - Pruritus [Unknown]
